FAERS Safety Report 12233390 (Version 1)
Quarter: 2016Q2

REPORT INFORMATION
  Report Type: Report from Study
  Country: US (occurrence: US)
  Receive Date: 20160404
  Receipt Date: 20160404
  Transmission Date: 20160815
  Serious: Yes (Other)
  Sender: FDA-Public Use
  Company Number: US-AMGEN-USASL2016039632

PATIENT
  Age: 58 Year
  Sex: Female

DRUGS (2)
  1. CALCIUM + VITAMIN D                /00944201/ [Concomitant]
     Active Substance: CALCIUM CARBONATE\CHOLECALCIFEROL
     Dosage: 600 MG CALCIUM ALONG WITH 5000 UNITS OF VITAMIN D
  2. PROLIA [Suspect]
     Active Substance: DENOSUMAB
     Indication: OSTEOPOROSIS
     Dosage: UNK
     Route: 065
     Dates: start: 201504

REACTIONS (15)
  - Spinal operation [Unknown]
  - Back pain [Recovered/Resolved]
  - Pain in extremity [Recovered/Resolved]
  - Gastric bypass [Unknown]
  - Upper limb fracture [Unknown]
  - Knee arthroplasty [Unknown]
  - Rib fracture [Unknown]
  - Shoulder operation [Unknown]
  - Fall [Unknown]
  - Mobility decreased [Unknown]
  - Barrett^s oesophagus [Unknown]
  - Musculoskeletal stiffness [Unknown]
  - Blood calcium decreased [Unknown]
  - Pain [Recovered/Resolved]
  - Abdominal pain upper [Recovered/Resolved]

NARRATIVE: CASE EVENT DATE: 2015
